FAERS Safety Report 6597610-2 (Version None)
Quarter: 2010Q1

REPORT INFORMATION
  Report Type: 
  Country: None (occurrence: None)
  Receive Date: 20100223
  Receipt Date: 20100211
  Transmission Date: 20100710
  Serious: Yes (Hospitalization)
  Sender: FDA-Public Use
  Company Number: US-MYLANLABS-2010S1002303

PATIENT
  Age: 53 Year
  Sex: Male
  Weight: 77.11 kg

DRUGS (2)
  1. FENTANYL CITRATE [Suspect]
     Indication: PAIN
     Dosage: CHANGED PATCHES Q3D
     Route: 062
     Dates: start: 20091201, end: 20100207
  2. FENTANYL CITRATE [Suspect]
     Dosage: CHANGED PATCHES Q3D
     Route: 062
     Dates: start: 20100211

REACTIONS (2)
  - AMNESIA [None]
  - FALL [None]
